FAERS Safety Report 5678632-2 (Version None)
Quarter: 2008Q1

REPORT INFORMATION
  Report Type: 
  Country: None (occurrence: None)
  Receive Date: 20080325
  Receipt Date: 20080313
  Transmission Date: 20080703
  Serious: Yes (Hospitalization, Other)
  Sender: FDA-Public Use
  Company Number: US-AMGEN-STX266376

PATIENT
  Sex: Female
  Weight: 65 kg

DRUGS (19)
  1. ENBREL [Suspect]
     Indication: SPONDYLOARTHROPATHY
     Route: 058
     Dates: start: 20030701
  2. MOBIC [Concomitant]
  3. METHOTREXATE [Concomitant]
     Route: 048
  4. DETROL [Concomitant]
  5. FLEXERIL [Concomitant]
  6. ESTROGEN NOS [Concomitant]
  7. PROGESTERONE [Concomitant]
  8. FERROUS SULFATE TAB [Concomitant]
  9. ACIPHEX [Concomitant]
  10. LEVOTHYROXINE SODIUM [Concomitant]
  11. LOPRESSOR [Concomitant]
  12. LIPITOR [Concomitant]
  13. AMBIEN [Concomitant]
  14. SINGULAIR [Concomitant]
  15. ADVAIR DISKUS 100/50 [Concomitant]
  16. ASPIRIN [Concomitant]
  17. XANAX [Concomitant]
  18. FOLATE SODIUM [Concomitant]
  19. VITAMIN B-12 [Concomitant]

REACTIONS (15)
  - ANAEMIA [None]
  - FATIGUE [None]
  - GASTROENTERITIS VIRAL [None]
  - INJECTION SITE ERYTHEMA [None]
  - INJECTION SITE IRRITATION [None]
  - INJECTION SITE PAIN [None]
  - INJECTION SITE PRURITUS [None]
  - INJECTION SITE SWELLING [None]
  - LUNG NEOPLASM [None]
  - NEUROPATHY PERIPHERAL [None]
  - OEDEMA PERIPHERAL [None]
  - PAPILLARY THYROID CANCER [None]
  - SPONDYLOARTHROPATHY [None]
  - UTERINE CANCER [None]
  - WHITE BLOOD CELL COUNT DECREASED [None]
